FAERS Safety Report 8835433 (Version 1)
Quarter: 2012Q4

REPORT INFORMATION
  Report Type: 
  Country: US (occurrence: US)
  Receive Date: 20121011
  Receipt Date: 20121011
  Transmission Date: 20130627
  Serious: Yes (Other)
  Sender: FDA-Public Use
  Company Number: US-MPIJNJ-2012-06275

PATIENT

DRUGS (9)
  1. DEXAMETHASONE [Concomitant]
     Indication: PRODUCT USED FOR UNKNOWN INDICATION
     Dosage: 20 mg, 1/week
     Route: 048
  2. ZOMETA [Concomitant]
     Indication: PRODUCT USED FOR UNKNOWN INDICATION
     Dosage: 4 mg, UNK
  3. MULTIVITAMIN                       /00831701/ [Concomitant]
     Indication: PRODUCT USED FOR UNKNOWN INDICATION
     Dosage: UNK
  4. VITAMIN D /00107901/ [Concomitant]
     Indication: PRODUCT USED FOR UNKNOWN INDICATION
     Dosage: 1000 IU, qd
  5. CARDURA [Concomitant]
     Indication: PRODUCT USED FOR UNKNOWN INDICATION
     Dosage: 4 mg, qd
  6. VELCADE [Suspect]
     Indication: MULTIPLE MYELOMA
     Dosage: 1.5 mg/m2, Cyclic
     Route: 058
     Dates: start: 20120817, end: 20120817
  7. VELCADE [Suspect]
     Dosage: 1.3 mg/m2, Cyclic
     Route: 058
     Dates: start: 20120120
  8. VELCADE [Suspect]
     Dosage: 2.82 mg, UNK
     Route: 058
     Dates: start: 20120914
  9. ACYCLOVIR                          /00587301/ [Concomitant]
     Indication: PRODUCT USED FOR UNKNOWN INDICATION
     Dosage: 400 mg, qd
     Route: 048

REACTIONS (1)
  - Partial seizures [Recovered/Resolved]
